FAERS Safety Report 15542798 (Version 1)
Quarter: 2018Q4

REPORT INFORMATION
  Report Type: Spontaneous
  Country: US (occurrence: US)
  Receive Date: 20181017
  Receipt Date: 20181017
  Transmission Date: 20190205
  Serious: Yes (Hospitalization)
  Sender: FDA-Public Use
  Company Number: None

PATIENT
  Age: 71 Year
  Sex: Male
  Weight: 82.8 kg

DRUGS (1)
  1. PEMBROLIZUMAB. [Suspect]
     Active Substance: PEMBROLIZUMAB

REACTIONS (7)
  - Hepatic enzyme increased [None]
  - Graft versus host disease in liver [None]
  - Drug-induced liver injury [None]
  - Polyuria [None]
  - Infusion related reaction [None]
  - Hyperglycaemia [None]
  - Polydipsia [None]

NARRATIVE: CASE EVENT DATE: 20180907
